FAERS Safety Report 6767990-3 (Version None)
Quarter: 2010Q2

REPORT INFORMATION
  Report Type: 
  Country: None (occurrence: None)
  Receive Date: 20100614
  Receipt Date: 20100604
  Transmission Date: 20101027
  Serious: Yes (Death)
  Sender: FDA-Public Use
  Company Number: A0863069A

PATIENT
  Age: 52 Year
  Sex: Female

DRUGS (2)
  1. AVANDIA [Suspect]
     Indication: BLOOD GLUCOSE
     Dosage: 8MG PER DAY
     Route: 048
     Dates: start: 20040101, end: 20070218
  2. NO CONCURRENT MEDICATION [Concomitant]

REACTIONS (5)
  - ABDOMINAL DISTENSION [None]
  - CARDIAC FAILURE CONGESTIVE [None]
  - FEELING ABNORMAL [None]
  - LUNG DISORDER [None]
  - SWELLING [None]
